FAERS Safety Report 6540148-9 (Version None)
Quarter: 2010Q1

REPORT INFORMATION
  Report Type: 
  Country: None (occurrence: None)
  Receive Date: 20100115
  Receipt Date: 20100113
  Transmission Date: 20100710
  Serious: Yes (Other)
  Sender: FDA-Public Use
  Company Number: US-GENENTECH-296846

PATIENT
  Sex: Male
  Weight: 91 kg

DRUGS (1)
  1. SOMATROPIN [Suspect]
     Indication: PRADER-WILLI SYNDROME
     Dosage: 3.5 MG, 7/WEEK
     Dates: start: 20020422

REACTIONS (1)
  - ANAL FISTULA [None]
